FAERS Safety Report 19414943 (Version 3)
Quarter: 2022Q1

REPORT INFORMATION
  Report Type: Report from Study
  Country: EG (occurrence: EG)
  Receive Date: 20210614
  Receipt Date: 20220106
  Transmission Date: 20220423
  Serious: Yes (Other)
  Sender: FDA-Public Use
  Company Number: EG-BAYER-2020-073417

PATIENT

DRUGS (4)
  1. EYLEA [Suspect]
     Active Substance: AFLIBERCEPT
     Indication: Dry age-related macular degeneration
     Dosage: TOTAL NO. OF EYLEA INJECTIONS IS 1 ?RIGHT EYE? ON (22-FEB-2020)
     Route: 031
     Dates: start: 20200222
  2. GLICLAZIDE [Concomitant]
     Active Substance: GLICLAZIDE
     Indication: Diabetes mellitus
     Dosage: 1 DF, OM
  3. CONCOR 5 PLUS [Concomitant]
     Indication: Hypertension
     Dosage: 1 DF, OM
  4. NAPIZOLE                           /00661201/ [Concomitant]
     Indication: Gastric disorder
     Dosage: 1 DF, OM

REACTIONS (13)
  - Retinal degeneration [Unknown]
  - Dry age-related macular degeneration [Not Recovered/Not Resolved]
  - Asthenopia [Not Recovered/Not Resolved]
  - Drug ineffective for unapproved indication [Not Recovered/Not Resolved]
  - Off label use [Not Recovered/Not Resolved]
  - COVID-19 [Unknown]
  - Injection site pain [Not Recovered/Not Resolved]
  - Inability to afford medication [Unknown]
  - Therapy interrupted [Unknown]
  - Eye pain [Not Recovered/Not Resolved]
  - Eye irritation [Not Recovered/Not Resolved]
  - Vision blurred [Not Recovered/Not Resolved]
  - Off label use [Not Recovered/Not Resolved]

NARRATIVE: CASE EVENT DATE: 20200222
